FAERS Safety Report 7810581-3 (Version None)
Quarter: 2011Q4

REPORT INFORMATION
  Report Type: 
  Country: None (occurrence: None)
  Receive Date: 20111013
  Receipt Date: 20111003
  Transmission Date: 20120403
  Serious: No
  Sender: FDA-Public Use
  Company Number: US-BIOGENIDEC-2010BI042419

PATIENT
  Sex: Female

DRUGS (2)
  1. REBIF [Concomitant]
     Indication: MULTIPLE SCLEROSIS
  2. TYSABRI [Suspect]
     Indication: MULTIPLE SCLEROSIS
     Route: 042
     Dates: start: 20100503

REACTIONS (12)
  - PALPITATIONS [None]
  - HEADACHE [None]
  - HYPERSENSITIVITY [None]
  - CHILLS [None]
  - TACHYCARDIA [None]
  - FLUSHING [None]
  - ABDOMINAL DISCOMFORT [None]
  - DEFAECATION URGENCY [None]
  - DIARRHOEA [None]
  - DISCOMFORT [None]
  - CHEST DISCOMFORT [None]
  - NAUSEA [None]
